FAERS Safety Report 8292070-8 (Version None)
Quarter: 2012Q2

REPORT INFORMATION
  Report Type: 
  Country: None (occurrence: None)
  Receive Date: 20120412
  Receipt Date: 20120327
  Transmission Date: 20120825
  Serious: Yes (Death)
  Sender: FDA-Public Use
  Company Number: DSA_56040_2012

PATIENT
  Sex: Male

DRUGS (2)
  1. WELLBUTRIN XL [Suspect]
     Indication: DEPRESSION
     Dosage: 150 MG QD ORAL
     Route: 048
     Dates: start: 20111120
  2. LAMOTRIGINE [Suspect]
     Indication: EPILEPSY
     Dosage: 25 MG BID ORAL
     Route: 048
     Dates: start: 20111213

REACTIONS (1)
  - DEATH [None]
